FAERS Safety Report 7754108-3 (Version None)
Quarter: 2011Q3

REPORT INFORMATION
  Report Type: 
  Country: None (occurrence: None)
  Receive Date: 20110915
  Receipt Date: 20110224
  Transmission Date: 20111222
  Serious: No
  Sender: FDA-Public Use
  Company Number: US-BAYER-2011-019145

PATIENT
  Sex: Male

DRUGS (2)
  1. MAGNEVIST [Suspect]
  2. MAGNEVIST [Suspect]
     Dosage: UNK
     Dates: start: 20110125

REACTIONS (1)
  - BLOOD THYROID STIMULATING HORMONE INCREASED [None]
